FAERS Safety Report 21541876 (Version 1)
Quarter: 2022Q4

REPORT INFORMATION
  Report Type: Spontaneous
  Country: CN (occurrence: CN)
  Receive Date: 20221102
  Receipt Date: 20221102
  Transmission Date: 20230113
  Serious: Yes (Other)
  Sender: FDA-Public Use
  Company Number: None

PATIENT
  Age: 59 Year
  Sex: Female
  Weight: 59 kg

DRUGS (7)
  1. CYCLOPHOSPHAMIDE [Suspect]
     Active Substance: CYCLOPHOSPHAMIDE
     Indication: Breast cancer female
     Dosage: 950 MG DILUTED IN 50 ML SODIUM CHLORIDE, SECOND REGIMEN CHEMOTHERAPY, QD
     Route: 042
     Dates: start: 20220916, end: 20220916
  2. CYCLOPHOSPHAMIDE [Suspect]
     Active Substance: CYCLOPHOSPHAMIDE
     Indication: Chemotherapy
  3. SODIUM CHLORIDE [Suspect]
     Active Substance: SODIUM CHLORIDE
     Indication: Medication dilution
     Dosage: 50 ML USED TO DILUTE 950 MG WITH CYCLOPHOSPHAMIDE (ENDOXAN CTX) , SECOND REGIMEN CHEMOTHERAPY, QD
     Route: 042
     Dates: start: 20220916, end: 20220916
  4. SODIUM CHLORIDE [Suspect]
     Active Substance: SODIUM CHLORIDE
     Dosage: 250 ML USED TO DILUTE 120 MG DOCETAXEL (HUIYU), SECOND REGIMEN CHEMOTHERAPY, QD
     Route: 041
     Dates: start: 20220916, end: 20220916
  5. DOCETAXEL [Suspect]
     Active Substance: DOCETAXEL
     Indication: Breast cancer
     Dosage: 120 MG DILUTED IN 250 ML SODIUM CHLORIDE, SECOND REGIMEN CHEMOTHERAPY, QD
     Route: 041
     Dates: start: 20220916, end: 20220916
  6. DOCETAXEL [Suspect]
     Active Substance: DOCETAXEL
     Indication: Chemotherapy
  7. Jin you li [Concomitant]
     Indication: Product used for unknown indication
     Dosage: 3 MG, SECOND DAY
     Route: 058
     Dates: start: 20220918, end: 20220918

REACTIONS (2)
  - White blood cell count decreased [Recovered/Resolved]
  - Agranulocytosis [Recovered/Resolved]

NARRATIVE: CASE EVENT DATE: 20220922
